FAERS Safety Report 4364740-5 (Version None)
Quarter: 2004Q2

REPORT INFORMATION
  Report Type: 
  Country: None (occurrence: None)
  Receive Date: 20040521
  Receipt Date: 20040503
  Transmission Date: 20050107
  Serious: Yes (Death, Hospitalization, Other)
  Sender: FDA-Public Use
  Company Number: US_0405102753

PATIENT
  Age: 52 Year
  Sex: Male
  Weight: 92 kg

DRUGS (5)
  1. GEMCITABINE HYDROCHLORIDE-IV (GEMCITABINE) [Suspect]
     Indication: NON-SMALL CELL LUNG CANCER
     Dosage: 2150 MG OTHER
     Route: 050
     Dates: end: 20011024
  2. CARBOPLATIN [Suspect]
     Indication: NON-SMALL CELL LUNG CANCER
     Dosage: 693 MG OTHER
     Route: 050
     Dates: end: 20011017
  3. AREDIA [Concomitant]
  4. LASIX [Concomitant]
  5. PROCRIT (ERYTHROPOIETIN) [Concomitant]

REACTIONS (12)
  - CARDIAC ARREST [None]
  - EPISTAXIS [None]
  - HAEMATOCRIT DECREASED [None]
  - HAEMOGLOBIN DECREASED [None]
  - HAEMOPTYSIS [None]
  - MEDICAL DEVICE COMPLICATION [None]
  - OBSTRUCTIVE AIRWAYS DISORDER [None]
  - PHARYNGEAL HAEMORRHAGE [None]
  - PULMONARY HAEMORRHAGE [None]
  - RESPIRATORY RATE INCREASED [None]
  - SINUSITIS [None]
  - THROMBOSIS [None]
